FAERS Safety Report 7295118-2 (Version None)
Quarter: 2011Q1

REPORT INFORMATION
  Report Type: 
  Country: None (occurrence: None)
  Receive Date: 20110216
  Receipt Date: 20110208
  Transmission Date: 20110831
  Serious: Yes (Other)
  Sender: FDA-Public Use
  Company Number: US-JNJCH-2011002462

PATIENT
  Sex: Female

DRUGS (1)
  1. BENADRYL [Suspect]
     Indication: HYPERSENSITIVITY
     Dosage: TEXT:ONE HALF OR ONE 25MG  TABLET ONCE DAILY
     Route: 048
     Dates: start: 20110101, end: 20110131

REACTIONS (7)
  - ABDOMINAL PAIN UPPER [None]
  - METAL POISONING [None]
  - FLATULENCE [None]
  - URTICARIA [None]
  - MALAISE [None]
  - BLOOD TEST ABNORMAL [None]
  - PRODUCT QUALITY ISSUE [None]
